FAERS Safety Report 24889445 (Version 1)
Quarter: 2025Q1

REPORT INFORMATION
  Report Type: Spontaneous
  Country: IN (occurrence: IN)
  Receive Date: 20250127
  Receipt Date: 20250127
  Transmission Date: 20250409
  Serious: Yes (Hospitalization, Other)
  Sender: MYLAN
  Company Number: IN-MYLANLABS-2025M1006079

PATIENT
  Age: 6 Year
  Sex: Male

DRUGS (8)
  1. TACROLIMUS [Suspect]
     Active Substance: TACROLIMUS
     Indication: Immunosuppressant drug therapy
     Route: 065
  2. FLUCYTOSINE [Suspect]
     Active Substance: FLUCYTOSINE
     Indication: Phaeohyphomycotic brain abscess
     Route: 048
  3. POSACONAZOLE [Suspect]
     Active Substance: POSACONAZOLE
     Indication: Phaeohyphomycotic brain abscess
     Route: 048
  4. VORICONAZOLE [Suspect]
     Active Substance: VORICONAZOLE
     Indication: Phaeohyphomycotic brain abscess
     Route: 048
  5. LEVETIRACETAM [Suspect]
     Active Substance: LEVETIRACETAM
     Indication: Partial seizures
     Route: 065
  6. AMPHOTERICIN B [Concomitant]
     Active Substance: AMPHOTERICIN B
     Indication: Phaeohyphomycotic brain abscess
     Route: 026
  7. AMPHOTERICIN B [Concomitant]
     Active Substance: AMPHOTERICIN B
     Indication: Phaeohyphomycotic brain abscess
     Route: 065
  8. AMPHOTERICIN B [Concomitant]
     Active Substance: AMPHOTERICIN B
     Indication: Phaeohyphomycotic brain abscess
     Route: 065

REACTIONS (7)
  - Drug ineffective [Unknown]
  - Phaeohyphomycotic brain abscess [Recovering/Resolving]
  - Rebound effect [Unknown]
  - Brain herniation [Unknown]
  - Hemiparesis [Recovered/Resolved]
  - Partial seizures [Recovered/Resolved]
  - Gastrointestinal disorder [Unknown]
